FAERS Safety Report 22136241 (Version 3)
Quarter: 2024Q3

REPORT INFORMATION
  Report Type: Report from Study
  Country: CA (occurrence: CA)
  Receive Date: 20230324
  Receipt Date: 20240701
  Transmission Date: 20241017
  Serious: Yes (Hospitalization, Other)
  Sender: TAKEDA
  Company Number: CA-TAKEDA-2023TUS029619

PATIENT
  Age: 45 Year
  Sex: Female

DRUGS (5)
  1. VEDOLIZUMAB [Suspect]
     Active Substance: VEDOLIZUMAB
     Indication: Crohn^s disease
     Dosage: 300 MILLIGRAM
     Route: 042
     Dates: start: 20220429
  2. VEDOLIZUMAB [Suspect]
     Active Substance: VEDOLIZUMAB
     Dosage: 300 MILLIGRAM
     Route: 042
     Dates: start: 20220805
  3. ENTOCORT [Concomitant]
     Active Substance: BUDESONIDE
     Dosage: UNK
     Dates: start: 20220419
  4. SYNTHROID [Concomitant]
     Active Substance: LEVOTHYROXINE SODIUM
     Dosage: 0.1 MILLIGRAM
  5. PROLIA [Concomitant]
     Active Substance: DENOSUMAB
     Dosage: 60 MILLIGRAM, Q6WEEKS
     Dates: start: 20220211

REACTIONS (7)
  - Oral fungal infection [Recovering/Resolving]
  - Acute febrile neutrophilic dermatosis [Unknown]
  - Sepsis [Not Recovered/Not Resolved]
  - Hypovolaemia [Not Recovered/Not Resolved]
  - Poor venous access [Unknown]
  - Tremor [Unknown]
  - Incorrect product administration duration [Unknown]

NARRATIVE: CASE EVENT DATE: 20220805
